FAERS Safety Report 18302620 (Version 1)
Quarter: 2020Q3

REPORT INFORMATION
  Report Type: Report from Study
  Country: NL (occurrence: NL)
  Receive Date: 20200923
  Receipt Date: 20200923
  Transmission Date: 20201103
  Serious: Yes (Death, Hospitalization, Other)
  Sender: FDA-Public Use
  Company Number: NL-JNJFOC-20200922687

PATIENT

DRUGS (1)
  1. STELARA [Suspect]
     Active Substance: USTEKINUMAB
     Indication: CROHN^S DISEASE
     Route: 058

REACTIONS (29)
  - Malignant peritoneal neoplasm [Unknown]
  - Eye disorder [Unknown]
  - Infusion related reaction [Unknown]
  - Abdominal sepsis [Fatal]
  - Procedural intestinal perforation [Unknown]
  - Cardiac disorder [Unknown]
  - Influenza like illness [Unknown]
  - Pyrexia [Unknown]
  - Neoplasm malignant [Unknown]
  - Lower respiratory tract infection [Unknown]
  - Upper respiratory tract infection [Unknown]
  - Angiopathy [Unknown]
  - Renal disorder [Unknown]
  - Device related infection [Unknown]
  - Connective tissue disorder [Unknown]
  - Diarrhoea [Unknown]
  - Type IV hypersensitivity reaction [Unknown]
  - Musculoskeletal disorder [Unknown]
  - Genital infection female [Unknown]
  - Mental disorder [Unknown]
  - Soft tissue infection [Unknown]
  - Post procedural infection [Unknown]
  - Postoperative abscess [Unknown]
  - Urinary tract infection [Unknown]
  - Gastrointestinal infection [Unknown]
  - Appendicitis [Unknown]
  - Skin infection [Unknown]
  - Herpes zoster [Unknown]
  - Nervous system disorder [Unknown]
